FAERS Safety Report 10736799 (Version 1)
Quarter: 2015Q1

REPORT INFORMATION
  Report Type: Spontaneous
  Country: US (occurrence: None)
  Receive Date: 20150122
  Receipt Date: 20150122
  Transmission Date: 20150721
  Serious: Yes (Death)
  Sender: FDA-Public Use
  Company Number: POI0573201500013

PATIENT
  Age: 77 Year
  Sex: Female

DRUGS (3)
  1. METOPROLOL [Suspect]
     Active Substance: METOPROLOL
     Dates: end: 2013
  2. CLONIDINE. [Suspect]
     Active Substance: CLONIDINE
     Dates: end: 2013
  3. NIFEDIPINE EXTENDED-RELEASE [Suspect]
     Active Substance: NIFEDIPINE
     Dates: end: 2013

REACTIONS (1)
  - Death [None]

NARRATIVE: CASE EVENT DATE: 2013
